FAERS Safety Report 4288635-0 (Version None)
Quarter: 2004Q1

REPORT INFORMATION
  Report Type: 
  Country: None (occurrence: None)
  Receive Date: 20040205
  Receipt Date: 20040115
  Transmission Date: 20041129
  Serious: Yes (Other)
  Sender: FDA-Public Use
  Company Number: US_040199959

PATIENT
  Age: 14 Year
  Sex: Male
  Weight: 49 kg

DRUGS (2)
  1. HUMATROPE [Suspect]
     Indication: GROWTH HORMONE DEFICIENCY
     Dosage: 1.8 MG/1 DAY
     Dates: start: 20020201, end: 20020701
  2. SYNTHROID [Suspect]

REACTIONS (1)
  - GLIOMA [None]
